FAERS Safety Report 19485903 (Version 1)
Quarter: 2021Q3

REPORT INFORMATION
  Report Type: Spontaneous
  Country: JP (occurrence: JP)
  Receive Date: 20210702
  Receipt Date: 20210702
  Transmission Date: 20211014
  Serious: Yes (Other)
  Sender: FDA-Public Use
  Company Number: JP-PFIZER INC-2021751508

PATIENT
  Age: 79 Year
  Sex: Female

DRUGS (6)
  1. ICODEXTRIN [Suspect]
     Active Substance: ICODEXTRIN
     Indication: END STAGE RENAL DISEASE
     Dosage: UNK UNK, CYCLIC
     Dates: start: 201210
  2. GLUCOSE [Concomitant]
     Active Substance: DEXTROSE
     Indication: END STAGE RENAL DISEASE
     Dosage: UNK (4?H, 2 CYCLE)
     Dates: start: 201210
  3. ATORVASTATIN [Concomitant]
     Active Substance: ATORVASTATIN
     Dosage: UNK
  4. NIFEDIPINE. [Suspect]
     Active Substance: NIFEDIPINE
     Dosage: UNK
  5. CALCIUM CARBONATE. [Concomitant]
     Active Substance: CALCIUM CARBONATE
     Dosage: UNK
  6. OLMESARTAN [Concomitant]
     Active Substance: OLMESARTAN
     Dosage: UNK

REACTIONS (1)
  - Pemphigoid [Recovered/Resolved]

NARRATIVE: CASE EVENT DATE: 201705
